FAERS Safety Report 18137931 (Version 2)
Quarter: 2025Q2

REPORT INFORMATION
  Report Type: Report from Study
  Country: IL (occurrence: NL)
  Receive Date: 20200812
  Receipt Date: 20250621
  Transmission Date: 20250717
  Serious: Yes (Congenital Anomaly, Other)
  Sender: AUROBINDO
  Company Number: NL-SYNTHON BV-IN51PV20_54775

PATIENT

DRUGS (3)
  1. CLOZAPINE [Suspect]
     Active Substance: CLOZAPINE
     Indication: Product used for unknown indication
     Route: 064
  2. CITALOPRAM [Suspect]
     Active Substance: CITALOPRAM
     Indication: Product used for unknown indication
     Route: 064
  3. LITHIUM [Suspect]
     Active Substance: LITHIUM
     Indication: Product used for unknown indication
     Route: 064

REACTIONS (3)
  - Ventricular septal defect [Unknown]
  - Atrial septal defect [Unknown]
  - Foetal exposure during pregnancy [Unknown]
